FAERS Safety Report 21470626 (Version 2)
Quarter: 2022Q4

REPORT INFORMATION
  Report Type: Report from Study
  Country: US (occurrence: US)
  Receive Date: 20221018
  Receipt Date: 20221107
  Transmission Date: 20230113
  Serious: No
  Sender: FDA-Public Use
  Company Number: US-ABBVIE-4137205

PATIENT
  Sex: Female

DRUGS (3)
  1. IMBRUVICA [Suspect]
     Active Substance: IBRUTINIB
     Indication: Chronic lymphocytic leukaemia
     Dosage: DRUG END/LAST ADMIN DATE ; 2022
     Route: 048
     Dates: start: 20220831
  2. IMBRUVICA [Suspect]
     Active Substance: IBRUTINIB
     Indication: Chronic lymphocytic leukaemia
     Route: 048
  3. CALQUENCE [Suspect]
     Active Substance: ACALABRUTINIB
     Indication: Product used for unknown indication
     Route: 048

REACTIONS (12)
  - Vomiting [Unknown]
  - Diarrhoea [Unknown]
  - Dementia [Unknown]
  - Nausea [Unknown]
  - Pain [Unknown]
  - Infection [Unknown]
  - Gastric disorder [Not Recovered/Not Resolved]
  - Fatigue [Unknown]
  - Night sweats [Unknown]
  - Back pain [Unknown]
  - Pruritus [Unknown]
  - Skin exfoliation [Unknown]

NARRATIVE: CASE EVENT DATE: 20220101
